FAERS Safety Report 8155871-2 (Version None)
Quarter: 2012Q1

REPORT INFORMATION
  Report Type: 
  Country: None (occurrence: None)
  Receive Date: 20120215
  Receipt Date: 20120201
  Transmission Date: 20120608
  Serious: Yes (Hospitalization)
  Sender: FDA-Public Use
  Company Number: 2012AP000271

PATIENT

DRUGS (3)
  1. TOPIRAMATE [Concomitant]
  2. LAMOTRIGINE [Concomitant]
  3. LEVETIRACETAM [Suspect]
     Indication: EPILEPSY
     Dosage: 2000 MG;PO
     Route: 048
     Dates: start: 20091019

REACTIONS (3)
  - ACCIDENT [None]
  - LIGAMENT RUPTURE [None]
  - MENISCUS LESION [None]
